FAERS Safety Report 7480794-1 (Version None)
Quarter: 2011Q2

REPORT INFORMATION
  Report Type: 
  Country: None (occurrence: None)
  Receive Date: 20110516
  Receipt Date: 20110502
  Transmission Date: 20111010
  Serious: Yes (Hospitalization)
  Sender: FDA-Public Use
  Company Number: US-ELI_LILLY_AND_COMPANY-US201103007204

PATIENT
  Sex: Female
  Weight: 70 kg

DRUGS (15)
  1. RESTORIL [Concomitant]
  2. PROTONIX [Concomitant]
  3. METAMUCIL-2 [Concomitant]
  4. FORTEO [Suspect]
     Indication: OSTEOPOROSIS POSTMENOPAUSAL
     Dosage: 20 UG, QD
     Route: 058
     Dates: start: 20101011, end: 20110306
  5. COZAAR [Concomitant]
  6. FISH OIL [Concomitant]
  7. VITAMIN B COMPLEX CAP [Concomitant]
  8. ANTIVERT [Concomitant]
     Dosage: 12.5 MG, PRN
  9. DIGOXIN [Concomitant]
     Dosage: .125 UNK, UNK
  10. LIDODERM [Concomitant]
  11. COUMADIN [Concomitant]
     Dosage: 2.5 MG, QD
  12. LASIX [Concomitant]
  13. VITAMIN D [Concomitant]
     Dosage: 1000 IU, UNK
  14. TRAMADOL HYDROCHLORIDE [Concomitant]
     Dosage: 50 MG, TID
  15. VITAMIN C [Concomitant]
     Dosage: 500 MG, UNK

REACTIONS (4)
  - DIVERTICULAR PERFORATION [None]
  - ABDOMINAL ABSCESS [None]
  - BACK PAIN [None]
  - CONSTIPATION [None]
